FAERS Safety Report 4571171-1 (Version None)
Quarter: 2005Q1

REPORT INFORMATION
  Report Type: 
  Country: None (occurrence: None)
  Receive Date: 20050202
  Receipt Date: 20041117
  Transmission Date: 20050727
  Serious: Yes (Hospitalization)
  Sender: FDA-Public Use
  Company Number: S05-FRA-00357-01

PATIENT
  Age: 66 Year
  Sex: Female

DRUGS (5)
  1. SEROPRAM (CITALOPRAM HYDROBROMIDE) [Suspect]
     Indication: DEPRESSION
     Dosage: 40 MG QD PO
     Route: 048
     Dates: end: 20040101
  2. SEROPRAM (CITALOPRAM HYDROBROMIDE) [Suspect]
     Indication: DEPRESSION
     Dosage: 20 MG QD PO
     Route: 048
     Dates: start: 20040101, end: 20040101
  3. SEROPRAM (CITALOPRAM HYDROBROMIDE) [Suspect]
     Indication: DEPRESSION
     Dosage: 20 MG QD PO
     Route: 048
  4. THERALENE (ALIMEMAZINE TARTRATE) [Suspect]
     Dates: end: 20040101
  5. BENZODIAZEPINE [Concomitant]

REACTIONS (3)
  - DYSKINESIA [None]
  - JOINT STIFFNESS [None]
  - SPEECH DISORDER [None]
